FAERS Safety Report 12855201 (Version 1)
Quarter: 2016Q4

REPORT INFORMATION
  Report Type: Spontaneous
  Country: NL (occurrence: NL)
  Receive Date: 20161017
  Receipt Date: 20161017
  Transmission Date: 20170207
  Serious: Yes (Other)
  Sender: FDA-Public Use
  Company Number: NL-MYLANLABS-2016M1043757

PATIENT

DRUGS (2)
  1. DIFFERIN [Concomitant]
     Active Substance: ADAPALENE
     Dosage: GEBRUIK VOLGENS SCHEMA (ONBEKEND)
     Route: 003
     Dates: start: 20150416
  2. ISOTRETINOIN [Suspect]
     Active Substance: ISOTRETINOIN
     Indication: ACNE
     Dosage: 10 MG, TID (3 KEER PER DAG 1 STUK(S))
     Route: 048
     Dates: start: 20160822

REACTIONS (1)
  - Deafness [Unknown]

NARRATIVE: CASE EVENT DATE: 20160925
